FAERS Safety Report 22881626 (Version 4)
Quarter: 2024Q1

REPORT INFORMATION
  Report Type: Spontaneous
  Country: JP (occurrence: JP)
  Receive Date: 20230830
  Receipt Date: 20240125
  Transmission Date: 20240410
  Serious: Yes (Other)
  Sender: FDA-Public Use
  Company Number: JP-CHUGAI-2023030759

PATIENT
  Age: 26 Year
  Sex: Male
  Weight: 79 kg

DRUGS (4)
  1. HEMLIBRA [Suspect]
     Active Substance: EMICIZUMAB-KXWH
     Indication: Haemophilia A without inhibitors
     Dosage: 240 MILLIGRAM, ONCE/2WEEKS
     Route: 058
     Dates: start: 20210122
  2. LOXOPROFEN SODIUM [Concomitant]
     Active Substance: LOXOPROFEN SODIUM
     Dosage: UNK
     Dates: start: 20141121
  3. ADYNOVATE [Concomitant]
     Active Substance: ANTIHEMOPHILIC FACTOR, HUMAN RECOMBINANT
     Dosage: UNK
     Dates: start: 20221215
  4. LOXOPROFEN SODIUM [Concomitant]
     Active Substance: LOXOPROFEN SODIUM
     Dosage: UNK
     Dates: start: 20210910

REACTIONS (5)
  - Haemarthrosis [Recovering/Resolving]
  - Tongue biting [Recovering/Resolving]
  - Tongue haematoma [Recovered/Resolved]
  - Tongue haemorrhage [Recovered/Resolved]
  - Product dose omission in error [Unknown]

NARRATIVE: CASE EVENT DATE: 20221201
